FAERS Safety Report 6067459-8 (Version None)
Quarter: 2009Q1

REPORT INFORMATION
  Report Type: 
  Country: None (occurrence: None)
  Receive Date: 20090205
  Receipt Date: 20090130
  Transmission Date: 20090719
  Serious: Yes (Death, Other)
  Sender: FDA-Public Use
  Company Number: US-TEVA-182712USA

PATIENT
  Sex: Female
  Weight: 56.296 kg

DRUGS (6)
  1. CLOZAPINE [Suspect]
  2. AMANTADINE HCL [Concomitant]
  3. BENZTROPINE MESYLATE [Concomitant]
  4. GABAPENTIN [Concomitant]
  5. METOCLOPRAMIDE [Concomitant]
  6. AMITIZA [Concomitant]

REACTIONS (1)
  - GASTROINTESTINAL HAEMORRHAGE [None]
